FAERS Safety Report 23705865 (Version 1)
Quarter: 2024Q2

REPORT INFORMATION
  Report Type: Spontaneous
  Country: US (occurrence: None)
  Receive Date: 20240403
  Receipt Date: 20240403
  Transmission Date: 20240716
  Serious: Yes (Hospitalization)
  Sender: FDA-Public Use
  Company Number: None

PATIENT
  Sex: Male

DRUGS (2)
  1. AMBRISENTAN [Suspect]
     Active Substance: AMBRISENTAN
     Indication: Pulmonary arterial hypertension
     Dosage: 10MG ONCE DAILY?
     Route: 048
     Dates: start: 202403
  2. REMODULIN [Concomitant]
     Active Substance: TREPROSTINIL
     Dosage: FREQUENCY : DAILY;?
     Route: 048

REACTIONS (2)
  - Pulmonary arterial hypertension [None]
  - Condition aggravated [None]
